FAERS Safety Report 5160307-X (Version None)
Quarter: 2006Q4

REPORT INFORMATION
  Report Type: 
  Country: None (occurrence: None)
  Receive Date: 20061129
  Receipt Date: 20051228
  Transmission Date: 20070319
  Serious: Yes (Hospitalization, Other)
  Sender: FDA-Public Use
  Company Number: JP-ELI_LILLY_AND_COMPANY-JP200601000716

PATIENT
  Age: 78 Year
  Sex: Female
  Weight: 39 kg

DRUGS (4)
  1. RALOXIFENE HCL [Suspect]
     Indication: OSTEOPOROSIS POSTMENOPAUSAL
     Dosage: 60 MG, DAILY (1/D)
     Route: 048
     Dates: start: 20050530, end: 20060811
  2. ADOFEED [Concomitant]
     Indication: BACK PAIN
     Dosage: 2 UNK, DAILY (1/D)
     Route: 062
     Dates: start: 20050530
  3. PL GRAN. [Concomitant]
     Indication: UPPER RESPIRATORY TRACT INFLAMMATION
     Dosage: 1 D/F, 3/D
     Route: 048
     Dates: start: 20050711, end: 20051012
  4. ASTOMIN [Concomitant]
     Indication: UPPER RESPIRATORY TRACT INFLAMMATION
     Dosage: 2 UNK, DAILY (1/D)
     Route: 048
     Dates: start: 20051007, end: 20051012

REACTIONS (6)
  - ANAEMIA [None]
  - BACK INJURY [None]
  - CONTUSION [None]
  - ESSENTIAL THROMBOCYTHAEMIA [None]
  - FALL [None]
  - HAEMORRHAGE [None]
